FAERS Safety Report 8843709 (Version 2)
Quarter: 2013Q2

REPORT INFORMATION
  Report Type: Report from Study
  Country: PE (occurrence: PE)
  Receive Date: 20121016
  Receipt Date: 20130503
  Transmission Date: 20140414
  Serious: Yes (Hospitalization)
  Sender: FDA-Public Use
  Company Number: PE-GILEAD-2012-0062815

PATIENT
  Age: 29 Year
  Sex: Male

DRUGS (3)
  1. EMTRICITABINE/TENOFOVIR DISOPROXIL FUMARATE [Suspect]
     Indication: HIV INFECTION
     Dosage: UNK
     Dates: start: 20120904
  2. EFAVIRENZ [Suspect]
     Dosage: 600 MG, QD
     Dates: start: 20120904
  3. OMEPRAZOLE [Concomitant]
     Indication: HIV INFECTION

REACTIONS (1)
  - Anaemia [Recovered/Resolved]
